FAERS Safety Report 15761726 (Version 2)
Quarter: 2019Q1

REPORT INFORMATION
  Report Type: Spontaneous
  Country: US (occurrence: US)
  Receive Date: 20181226
  Receipt Date: 20190104
  Transmission Date: 20190417
  Serious: Yes (Hospitalization)
  Sender: FDA-Public Use
  Company Number: US-VERTEX PHARMACEUTICALS-2018-009801

PATIENT
  Sex: Male

DRUGS (33)
  1. CALCIUM + VITAMIN D                /01817601/ [Concomitant]
     Active Substance: CALCIUM LACTATE\CALCIUM PHOSPHATE\CHOLECALCIFEROL
  2. SYMDEKO [Suspect]
     Active Substance: IVACAFTOR\TEZACAFTOR
     Indication: CYSTIC FIBROSIS
     Dosage: 100 MG TEZACAFTOR, 150 MG IVACAFTOR AM; 150 MG IVACAFTOR PM
     Route: 048
     Dates: start: 20180424
  3. HYDROXYZINE HCL [Concomitant]
     Active Substance: HYDROXYZINE HYDROCHLORIDE
  4. ALENDRONATE [Concomitant]
     Active Substance: ALENDRONATE SODIUM
  5. OSELTAMIVIR [Concomitant]
     Active Substance: OSELTAMIVIR
  6. RYMED [Concomitant]
     Active Substance: DEXCHLORPHENIRAMINE MALEATE\PHENYLEPHRINE HYDROCHLORIDE
  7. MAGNESIUM [Concomitant]
     Active Substance: MAGNESIUM
  8. URSODIOL. [Concomitant]
     Active Substance: URSODIOL
  9. VYVANSE [Concomitant]
     Active Substance: LISDEXAMFETAMINE DIMESYLATE
  10. PULMOZYME [Concomitant]
     Active Substance: DORNASE ALFA
  11. ZENPEP [Concomitant]
     Active Substance: PANCRELIPASE AMYLASE\PANCRELIPASE LIPASE\PANCRELIPASE PROTEASE
  12. VENTOLIN HFA [Concomitant]
     Active Substance: ALBUTEROL SULFATE
  13. ACIDOPHILUS [Concomitant]
     Active Substance: LACTOBACILLUS ACIDOPHILUS
  14. GAMUNEX-C [Concomitant]
     Active Substance: HUMAN IMMUNOGLOBULIN G
  15. COLISTIMETHATE                     /00013204/ [Concomitant]
     Active Substance: COLISTIMETHATE SODIUM
  16. EPIPEN [Concomitant]
     Active Substance: EPINEPHRINE
  17. PREDNISONE. [Concomitant]
     Active Substance: PREDNISONE
  18. HIZENTRA [Concomitant]
     Active Substance: HUMAN IMMUNOGLOBULIN G
  19. FLOVENT HFA [Concomitant]
     Active Substance: FLUTICASONE PROPIONATE
  20. DOXYCYCLINE. [Concomitant]
     Active Substance: DOXYCYCLINE
  21. FLUTICASONE. [Concomitant]
     Active Substance: FLUTICASONE
  22. OMEPRAZOLE. [Concomitant]
     Active Substance: OMEPRAZOLE
  23. DEXMETHYLPHENIDATE [Concomitant]
     Active Substance: DEXMETHYLPHENIDATE HYDROCHLORIDE
  24. NORDITROPIN [Concomitant]
     Active Substance: SOMATROPIN
  25. SMZ-TMP [Concomitant]
     Active Substance: SULFAMETHOXAZOLE\TRIMETHOPRIM
  26. HYPERSAL [Concomitant]
  27. OMEGA-3                            /01866101/ [Concomitant]
     Active Substance: OMEGA-3 FATTY ACIDS
  28. ARIPIPRAZOLE. [Concomitant]
     Active Substance: ARIPIPRAZOLE
  29. K-TAB [Concomitant]
     Active Substance: POTASSIUM CHLORIDE
  30. FOCALIN [Concomitant]
     Active Substance: DEXMETHYLPHENIDATE HYDROCHLORIDE
  31. DOXYCYCLINE HYCLATE. [Concomitant]
     Active Substance: DOXYCYCLINE HYCLATE
  32. KITABIS PAK [Concomitant]
     Active Substance: TOBRAMYCIN
  33. MILK THISTLE 35000 PLUS TAURINE [Concomitant]

REACTIONS (1)
  - Pulmonary function test decreased [Not Recovered/Not Resolved]

NARRATIVE: CASE EVENT DATE: 2018
